FAERS Safety Report 11513595 (Version 1)
Quarter: 2015Q3

REPORT INFORMATION
  Report Type: Spontaneous
  Country: US (occurrence: US)
  Receive Date: 20150903
  Receipt Date: 20150903
  Transmission Date: 20151125
  Serious: No
  Sender: FDA-Public Use
  Company Number: US-ELI_LILLY_AND_COMPANY-US201210009225

PATIENT
  Age: 63 Year
  Sex: Female

DRUGS (2)
  1. CYMBALTA [Suspect]
     Active Substance: DULOXETINE HYDROCHLORIDE
     Indication: BACK PAIN
     Dosage: 30 MG, BID
     Dates: start: 2007
  2. CYMBALTA [Suspect]
     Active Substance: DULOXETINE HYDROCHLORIDE
     Dosage: 60 MG, QD
     Route: 065
     Dates: start: 2011

REACTIONS (12)
  - Dysgeusia [Unknown]
  - Increased upper airway secretion [Unknown]
  - Cough [Unknown]
  - Tooth disorder [Unknown]
  - Borderline glaucoma [Unknown]
  - Dry mouth [Not Recovered/Not Resolved]
  - Breath odour [Unknown]
  - Fatigue [Unknown]
  - Somnolence [Unknown]
  - Vitamin D deficiency [Unknown]
  - Stomatitis [Unknown]
  - Cataract operation [Unknown]

NARRATIVE: CASE EVENT DATE: 201205
